FAERS Safety Report 5724657-8 (Version None)
Quarter: 2008Q2

REPORT INFORMATION
  Report Type: 
  Country: None (occurrence: None)
  Receive Date: 20080430
  Receipt Date: 20080430
  Transmission Date: 20081010
  Serious: Yes (Other)
  Sender: FDA-Public Use
  Company Number: None

PATIENT
  Age: 75 Year
  Sex: Female

DRUGS (1)
  1. DIGITEK 0.125MG [Suspect]
     Indication: CORONARY ARTERY BYPASS
     Dates: start: 20080310, end: 20080428

REACTIONS (4)
  - CHILLS [None]
  - DIZZINESS [None]
  - HYPOTENSION [None]
  - NAUSEA [None]
